FAERS Safety Report 17305274 (Version 1)
Quarter: 2020Q1

REPORT INFORMATION
  Report Type: Spontaneous
  Country: US (occurrence: US)
  Receive Date: 20200123
  Receipt Date: 20200123
  Transmission Date: 20200409
  Serious: No
  Sender: FDA-Public Use
  Company Number: US-PFIZER INC-2020030779

PATIENT

DRUGS (3)
  1. VINCRISTINE SULFATE. [Suspect]
     Active Substance: VINCRISTINE SULFATE
     Indication: LEUKAEMIA
     Dosage: UNK
     Dates: start: 20200115
  2. NEBUPENT [Suspect]
     Active Substance: PENTAMIDINE ISETHIONATE
     Dosage: 150 MG (HALF DOSE)
     Dates: start: 20200120
  3. NEBUPENT [Suspect]
     Active Substance: PENTAMIDINE ISETHIONATE
     Indication: ANTIFUNGAL PROPHYLAXIS
     Dosage: ABOUT 3 ML
     Dates: start: 20200115

REACTIONS (1)
  - Pulmonary pain [Recovered/Resolved]

NARRATIVE: CASE EVENT DATE: 2020
